FAERS Safety Report 8868846 (Version 1)
Quarter: 2012Q4

REPORT INFORMATION
  Report Type: 
  Country: FR (occurrence: FR)
  Receive Date: 20121024
  Receipt Date: 20121024
  Transmission Date: 20130627
  Serious: Yes (Hospitalization)
  Sender: FDA-Public Use
  Company Number: FR-B.I. PHARMACEUTICALS,INC./RIDGEFIELD-2012-FF-01500FF

PATIENT
  Age: 75 Year
  Sex: Male

DRUGS (1)
  1. PRADAXA [Suspect]
     Indication: ATRIAL FIBRILLATION
     Dosage: 220 mg
     Route: 048
     Dates: start: 20120803

REACTIONS (7)
  - Haemorrhage [Unknown]
  - Wrist fracture [Recovered/Resolved]
  - Drug clearance decreased [Recovered/Resolved]
  - Coagulation factor decreased [Recovered/Resolved]
  - Coagulation factor IX level decreased [Recovered/Resolved]
  - Activated partial thromboplastin time prolonged [Recovered/Resolved]
  - Thrombin time prolonged [Recovered/Resolved]
